FAERS Safety Report 4797874-1 (Version None)
Quarter: 2005Q3

REPORT INFORMATION
  Report Type: 
  Country: None (occurrence: None)
  Receive Date: 20050929
  Receipt Date: 20050613
  Transmission Date: 20060218
  Serious: No
  Sender: FDA-Public Use
  Company Number: 05P-163-0301297-00

PATIENT
  Age: 62 Year
  Sex: Female
  Weight: 69.4003 kg

DRUGS (5)
  1. HUMIRA [Suspect]
     Indication: RHEUMATOID ARTHRITIS
     Dosage: 40 MG, SUBCUTANEOUS
     Route: 058
     Dates: start: 20050520
  2. ESTROGEN PATCH [Concomitant]
  3. BUTALBITAL W/ ASPIRIN + CAFFEINE [Concomitant]
  4. ZOLMITRIPTAN [Concomitant]
  5. VIDELLE [Concomitant]

REACTIONS (2)
  - COUGH [None]
  - HEADACHE [None]
